FAERS Safety Report 5802523-7 (Version None)
Quarter: 2008Q3

REPORT INFORMATION
  Report Type: 
  Country: None (occurrence: None)
  Receive Date: 20080708
  Receipt Date: 20080702
  Transmission Date: 20090109
  Serious: Yes (Other)
  Sender: FDA-Public Use
  Company Number: BR-JNJFOC-20080700893

PATIENT
  Sex: Female
  Weight: 10 kg

DRUGS (3)
  1. MEBENDAZOLE [Suspect]
     Indication: HELMINTHIC INFECTION
     Dosage: BATCH # KI1150,EXP:SEP-2010
     Route: 048
  2. BROMPHENIRAMINE MALEATE [Concomitant]
     Indication: NASOPHARYNGITIS
     Dosage: 10 DROPS EVERY 8 HOURS
  3. PREDNISONE TAB [Concomitant]
     Indication: NASOPHARYNGITIS
     Dosage: 3.5ML SINGLE DOSE

REACTIONS (2)
  - BREATH SOUNDS [None]
  - MOUTH INJURY [None]
